FAERS Safety Report 15657679 (Version 1)
Quarter: 2018Q4

REPORT INFORMATION
  Report Type: Report from Study
  Country: US (occurrence: US)
  Receive Date: 20181126
  Receipt Date: 20181126
  Transmission Date: 20190205
  Serious: Yes (Hospitalization, Other)
  Sender: FDA-Public Use
  Company Number: US-JNJFOC-20180907225

PATIENT
  Age: 64 Year
  Sex: Female

DRUGS (21)
  1. BUDESONIDE. [Concomitant]
     Active Substance: BUDESONIDE
  2. MONTELUKAST [Concomitant]
     Active Substance: MONTELUKAST SODIUM
     Route: 048
  3. CLOBETASOL [Concomitant]
     Active Substance: CLOBETASOL
     Indication: MUCOSAL ULCERATION
     Route: 061
  4. MELATONIN [Concomitant]
     Active Substance: MELATONIN
  5. BACTRIM DS [Concomitant]
     Active Substance: SULFAMETHOXAZOLE\TRIMETHOPRIM
  6. SIROLIMUS. [Concomitant]
     Active Substance: SIROLIMUS
     Route: 048
  7. OXYCODONE [Concomitant]
     Active Substance: OXYCODONE
  8. IMBRUVICA [Suspect]
     Active Substance: IBRUTINIB
     Indication: GRAFT VERSUS HOST DISEASE
     Route: 048
     Dates: end: 20180913
  9. IMATINIB. [Concomitant]
     Active Substance: IMATINIB MESYLATE
  10. LORAZEPAM. [Concomitant]
     Active Substance: LORAZEPAM
  11. PREGABALIN. [Concomitant]
     Active Substance: PREGABALIN
     Route: 048
  12. FLUCONAZOLE. [Concomitant]
     Active Substance: FLUCONAZOLE
     Route: 048
  13. LASIX [Concomitant]
     Active Substance: FUROSEMIDE
     Route: 048
  14. PREDNISONE. [Concomitant]
     Active Substance: PREDNISONE
  15. FLUTICASONE. [Concomitant]
     Active Substance: FLUTICASONE
  16. CHOLECALCIFEROL [Concomitant]
     Active Substance: CHOLECALCIFEROL
  17. LEVOTHYROXINE. [Concomitant]
     Active Substance: LEVOTHYROXINE
     Route: 048
  18. PANTOPRAZOLE [Concomitant]
     Active Substance: PANTOPRAZOLE
  19. ACYCLOVIR. [Concomitant]
     Active Substance: ACYCLOVIR
  20. CIPROFLOXACIN. [Concomitant]
     Active Substance: CIPROFLOXACIN
  21. ONDANSETRON [Concomitant]
     Active Substance: ONDANSETRON

REACTIONS (7)
  - Immunosuppression [Recovered/Resolved with Sequelae]
  - Pneumonia [Recovered/Resolved with Sequelae]
  - Cytomegalovirus infection [Unknown]
  - Cardiac failure congestive [Unknown]
  - Pneumonitis [Unknown]
  - Pleurisy [Unknown]
  - Pancytopenia [Recovered/Resolved with Sequelae]

NARRATIVE: CASE EVENT DATE: 20180814
